FAERS Safety Report 5255401-9 (Version None)
Quarter: 2007Q1

REPORT INFORMATION
  Report Type: 
  Country: None (occurrence: None)
  Receive Date: 20070305
  Receipt Date: 20070219
  Transmission Date: 20070707
  Serious: Yes (Other)
  Sender: FDA-Public Use
  Company Number: IT-ELI_LILLY_AND_COMPANY-IT200702004502

PATIENT
  Age: 66 Year
  Sex: Female

DRUGS (1)
  1. RALOXIFENE HCL [Suspect]

REACTIONS (1)
  - SCOTOMA [None]
